FAERS Safety Report 10264161 (Version 2)
Quarter: 2014Q3

REPORT INFORMATION
  Report Type: Spontaneous
  Country: FR (occurrence: FR)
  Receive Date: 20140627
  Receipt Date: 20140717
  Transmission Date: 20150326
  Serious: Yes (Other)
  Sender: FDA-Public Use
  Company Number: FR-BEH-2014043384

PATIENT
  Age: 27 Year
  Sex: Female

DRUGS (3)
  1. PREDNISOLONE. [Suspect]
     Active Substance: PREDNISOLONE
     Indication: STILL^S DISEASE ADULT ONSET
  2. INTRAVENOUS POLYVALENT IMMUNOGLOBULIN [Suspect]
     Active Substance: HUMAN IMMUNOGLOBULIN G
     Indication: STILL^S DISEASE ADULT ONSET
  3. INDOMETHACIN. [Suspect]
     Active Substance: INDOMETHACIN
     Indication: STILL^S DISEASE ADULT ONSET

REACTIONS (5)
  - Premature rupture of membranes [Unknown]
  - Exposure during pregnancy [Unknown]
  - Drug ineffective for unapproved indication [Unknown]
  - Premature delivery [Unknown]
  - Oligohydramnios [Unknown]
